FAERS Safety Report 5376697-9 (Version None)
Quarter: 2007Q2

REPORT INFORMATION
  Report Type: 
  Country: None (occurrence: None)
  Receive Date: 20070629
  Receipt Date: 20070621
  Transmission Date: 20071010
  Serious: Yes (Life-Threatening, Hospitalization)
  Sender: FDA-Public Use
  Company Number: 2007EN000033

PATIENT
  Age: 11 Year
  Sex: Female
  Weight: 66.9 kg

DRUGS (1)
  1. ONCASPAR [Suspect]
     Indication: ACUTE LYMPHOCYTIC LEUKAEMIA
     Dosage: 4125 IU; IM
     Route: 030
     Dates: start: 20061116, end: 20061226

REACTIONS (1)
  - ANAPHYLACTIC REACTION [None]
